FAERS Safety Report 25046456 (Version 1)
Quarter: 2025Q1

REPORT INFORMATION
  Report Type: Spontaneous
  Country: JP (occurrence: JP)
  Receive Date: 20250306
  Receipt Date: 20250306
  Transmission Date: 20250409
  Serious: Yes (Other)
  Sender: MERCK SHARP & DOHME LLC
  Company Number: JP-MSD-2501JPN002711J

PATIENT
  Age: 8 Decade
  Sex: Male

DRUGS (2)
  1. BELSOMRA [Suspect]
     Active Substance: SUVOREXANT
     Route: 048
  2. RAMELTEON [Concomitant]
     Active Substance: RAMELTEON
     Route: 065

REACTIONS (1)
  - Delirium [Recovered/Resolved]
